FAERS Safety Report 20184221 (Version 4)
Quarter: 2022Q1

REPORT INFORMATION
  Report Type: Other
  Country: US (occurrence: US)
  Receive Date: 20211214
  Receipt Date: 20220331
  Transmission Date: 20220423
  Serious: Yes (Hospitalization, Other)
  Sender: FDA-Public Use
  Company Number: US-NEUROCRINE BIOSCIENCES INC.-2021NBI07123

PATIENT

DRUGS (28)
  1. INGREZZA [Suspect]
     Active Substance: VALBENAZINE
     Indication: Tardive dyskinesia
     Dosage: 80 MILLIGRAM, QD
     Route: 048
     Dates: start: 20210420, end: 202203
  2. IBUPROFEN [Suspect]
     Active Substance: IBUPROFEN
     Dosage: UNK
  3. PRILOSEC [Concomitant]
     Active Substance: OMEPRAZOLE MAGNESIUM
     Indication: Ulcer
     Dosage: 40 MILLIGRAM, BID
     Route: 048
  4. ADVAIR HFA [Concomitant]
     Active Substance: FLUTICASONE PROPIONATE\SALMETEROL XINAFOATE
     Dosage: INHALE 1 PUFF BY MOUTH, BID
  5. ALBUTEROL SULFATE [Concomitant]
     Active Substance: ALBUTEROL SULFATE
     Indication: Wheezing
     Dosage: INHALE 2 PUFFS INTO LUNGS, EVERY 4 HRS PRN
  6. NORVASC [Concomitant]
     Active Substance: AMLODIPINE BESYLATE
     Dosage: 10 MILLIGRAM, QD
     Route: 048
  7. ASPIRIN [Concomitant]
     Active Substance: ASPIRIN
     Dosage: 81 MILLIGRAM
  8. LIPITOR [Concomitant]
     Active Substance: ATORVASTATIN CALCIUM
     Dosage: 80 MILLIGRAM, QD
  9. ATROPINE [Concomitant]
     Active Substance: ATROPINE
     Dosage: 1 DROP INTO RIGHT EYE, BID
     Route: 047
  10. ZYRTEC [Concomitant]
     Active Substance: CETIRIZINE HYDROCHLORIDE
     Dosage: 10 MILLIGRAM, BID
     Route: 048
  11. VITAMIN D3 [Concomitant]
     Active Substance: CHOLECALCIFEROL
     Dosage: 1000 INTERNATIONAL UNIT, QD
  12. ADDERALL [Concomitant]
     Active Substance: AMPHETAMINE ASPARTATE\AMPHETAMINE SULFATE\DEXTROAMPHETAMINE SACCHARATE\DEXTROAMPHETAMINE SULFATE
     Dosage: 20 MILLIGRAM, BID
     Route: 048
  13. VOLTAREN [Concomitant]
     Active Substance: DICLOFENAC SODIUM
     Dosage: 4 GRAM, QID
     Route: 061
  14. ILOTYCIN [Concomitant]
     Active Substance: ERYTHROMYCIN
     Dosage: LACE INTO RIGHT EYE, BID
     Route: 047
  15. LEXAPRO [Concomitant]
     Active Substance: ESCITALOPRAM OXALATE
     Dosage: 20 MILLIGRAM, QD
     Route: 048
  16. FLONASE [Concomitant]
     Active Substance: FLUTICASONE PROPIONATE
     Dosage: TWO SPRAYS IN EACH NOSTRIL, QD
     Route: 045
  17. NEURONTIN [Concomitant]
     Active Substance: GABAPENTIN
     Dosage: 600 MG IN THE MORNING, 600 MG IN THE AFTERNOON, AND 2100MG AT NIGHT
     Route: 048
  18. VISTARIL [Concomitant]
     Active Substance: HYDROXYZINE PAMOATE
     Dosage: 50 MILLIGRAM, QD (NIGHTLY)
     Route: 048
  19. BASAGLAR [Concomitant]
     Active Substance: INSULIN GLARGINE
     Dosage: 35 UNITS, QD (EVERY EVENING)
     Route: 058
  20. XALATAN [Concomitant]
     Active Substance: LATANOPROST
     Dosage: 1 DROP INTO LEFT EYE, QD (NIGHTLY)
     Route: 047
  21. COZAAR [Concomitant]
     Active Substance: LOSARTAN POTASSIUM
     Dosage: 50 MILLIGRAM, QD
     Route: 048
  22. GLUCOPHAGE [Concomitant]
     Active Substance: METFORMIN HYDROCHLORIDE
     Dosage: 1000 MILLIGRAM, BID
     Route: 048
  23. MYCOSTATIN [Concomitant]
     Active Substance: NYSTATIN
     Dosage: UNK, CONTINOUS PRN
  24. PRED FORTE [Concomitant]
     Active Substance: PREDNISOLONE ACETATE
     Dosage: 1 DROP IN RIGHT AND LEFT EYE, EVERY 2 HOURS WHILE AWAKE
     Route: 047
  25. NEBCIN [Concomitant]
     Active Substance: TOBRAMYCIN SULFATE
     Dosage: 14 MG/ML, 1 DROP IN RIGHT AND LEFT EYE, EVERY HOUR WHILE AWAKE
     Route: 047
  26. VANCOCIN [Concomitant]
     Active Substance: VANCOMYCIN HYDROCHLORIDE
     Dosage: 25 MG/ML, 1 DROP IN RIGHT AND LEFT EYE, EVERY HOUR WHILE AWAKE
     Route: 047
  27. VICTOZA [Concomitant]
     Active Substance: LIRAGLUTIDE
     Dosage: 1.8 MILLIGRAM, QD
     Route: 058
  28. TEGRETOL [Concomitant]
     Active Substance: CARBAMAZEPINE
     Dosage: 100 MILLIGRAM, BID

REACTIONS (5)
  - Endophthalmitis [Recovering/Resolving]
  - Trabeculectomy [Recovering/Resolving]
  - Ulcer [Recovered/Resolved]
  - Intentional overdose [Unknown]
  - Hospitalisation [Unknown]

NARRATIVE: CASE EVENT DATE: 20211201
